FAERS Safety Report 10439093 (Version 1)
Quarter: 2014Q3

REPORT INFORMATION
  Report Type: Spontaneous
  Country: US (occurrence: US)
  Receive Date: 20140908
  Receipt Date: 20140908
  Transmission Date: 20150326
  Serious: No
  Sender: FDA-Public Use
  Company Number: US-BRISTOL-MYERS SQUIBB COMPANY-19918390

PATIENT
  Age: 59 Year
  Sex: Female
  Weight: 72.56 kg

DRUGS (6)
  1. NUVIGIL [Suspect]
     Active Substance: ARMODAFINIL
     Dosage: TABS
     Route: 048
     Dates: start: 20121219
  2. LEVOTHYROXINE [Concomitant]
     Active Substance: LEVOTHYROXINE
  3. ABILIFY [Suspect]
     Active Substance: ARIPIPRAZOLE
     Dates: start: 20130522
  4. PROZAC [Concomitant]
     Active Substance: FLUOXETINE HYDROCHLORIDE
     Indication: DEPRESSION
  5. SEROQUEL [Concomitant]
     Active Substance: QUETIAPINE FUMARATE
     Indication: SOMNOLENCE
  6. CLONAZEPAM. [Concomitant]
     Active Substance: CLONAZEPAM
     Indication: ANXIETY

REACTIONS (4)
  - Confusional state [Unknown]
  - Weight increased [Unknown]
  - Headache [Unknown]
  - Drug ineffective [Unknown]

NARRATIVE: CASE EVENT DATE: 201302
